FAERS Safety Report 7716629-9 (Version None)
Quarter: 2011Q3

REPORT INFORMATION
  Report Type: 
  Country: None (occurrence: None)
  Receive Date: 20110829
  Receipt Date: 20110816
  Transmission Date: 20111222
  Serious: Yes (Hospitalization)
  Sender: FDA-Public Use
  Company Number: GB-CELGENEUS-167-CCAZA-11051475

PATIENT
  Sex: Female
  Weight: 93 kg

DRUGS (15)
  1. ATROGEL [Concomitant]
     Dosage: APPLY TO AREA
     Route: 061
     Dates: start: 20110118
  2. DERMOVATE-NN CREAM [Concomitant]
     Indication: ECZEMA
     Route: 061
     Dates: start: 20110202
  3. ONDANSETRON [Concomitant]
     Indication: PROPHYLAXIS
     Dosage: 16 MILLIGRAM
     Route: 048
     Dates: start: 20110228
  4. METOCLOPRAMIDE [Concomitant]
     Indication: PROPHYLAXIS
  5. CIPROFLOXACIN [Concomitant]
     Indication: PROPHYLAXIS
     Dosage: 1500 MILLIGRAM
     Route: 048
     Dates: start: 20110104
  6. AZACITIDINE [Suspect]
     Dosage: 75 MILLIGRAM/SQ. METER
     Route: 058
     Dates: start: 20110104, end: 20110110
  7. HYDROXZINE HYDROCHLORIDE [Concomitant]
     Indication: ECZEMA
     Route: 048
     Dates: start: 20110131
  8. AZACITIDINE [Suspect]
     Dosage: 75 MILLIGRAM/SQ. METER
     Route: 058
     Dates: start: 20110426, end: 20110502
  9. ACYCLOVIR [Concomitant]
     Indication: PROPHYLAXIS
     Dosage: 800 MILLIGRAM
     Route: 048
     Dates: start: 20110104
  10. AVEENO BATH OIL [Concomitant]
     Indication: ECZEMA
     Dosage: DROPS
     Route: 061
     Dates: start: 20110202
  11. METOCLOPRAMIDE [Concomitant]
     Indication: NAUSEA
     Dosage: 60 MILLIGRAM
     Route: 048
     Dates: start: 20110228
  12. ONDANSETRON [Concomitant]
     Indication: NAUSEA
  13. FLUCONAZOLE [Concomitant]
     Indication: PROPHYLAXIS
     Dosage: 400 MILLIGRAM
     Route: 048
     Dates: start: 20110104
  14. CHLORPHENIRAMINE MALEATE [Concomitant]
     Indication: ECZEMA
     Dosage: 8 MILLIGRAM
     Route: 048
     Dates: start: 20101116
  15. DERMOVATE-NN CREAM [Concomitant]
     Route: 061
     Dates: start: 20110131, end: 20110202

REACTIONS (1)
  - PRESYNCOPE [None]
